FAERS Safety Report 5510421-1 (Version None)
Quarter: 2007Q4

REPORT INFORMATION
  Report Type: 
  Country: None (occurrence: None)
  Receive Date: 20071108
  Receipt Date: 20071029
  Transmission Date: 20080405
  Serious: Yes (Hospitalization, Other)
  Sender: FDA-Public Use
  Company Number: DK-ABBOTT-07P-044-0419940-00

PATIENT
  Age: 16 Year
  Sex: Male

DRUGS (3)
  1. HUMIRA [Suspect]
     Indication: JUVENILE ARTHRITIS
     Route: 058
     Dates: start: 20060330, end: 20071001
  2. METHOTREXATE [Concomitant]
     Indication: JUVENILE ARTHRITIS
  3. FOLIC ACID [Concomitant]
     Indication: JUVENILE ARTHRITIS
     Dates: start: 20050101

REACTIONS (4)
  - CONVULSION [None]
  - LOSS OF CONSCIOUSNESS [None]
  - SYNCOPE [None]
  - TREMOR [None]
